FAERS Safety Report 8452385-7 (Version None)
Quarter: 2012Q2

REPORT INFORMATION
  Report Type: 
  Country: None (occurrence: None)
  Receive Date: 20120620
  Receipt Date: 20120409
  Transmission Date: 20120825
  Serious: No
  Sender: FDA-Public Use
  Company Number: US-VERTEX PHARMACEUTICALS INC.-AE-2012-005091

PATIENT
  Sex: Female
  Weight: 65.83 kg

DRUGS (10)
  1. PEGASYS [Concomitant]
     Indication: HEPATITIS C
     Route: 058
     Dates: start: 20120323
  2. NADOLOL [Concomitant]
  3. SPIRONOLACTONE [Concomitant]
  4. RIBASPHERE [Concomitant]
     Indication: HEPATITIS C
     Dates: start: 20120323
  5. FUROSEMIDE [Concomitant]
  6. INCIVEK [Suspect]
     Indication: HEPATITIS C
     Route: 048
     Dates: start: 20120323
  7. HUMALOG [Concomitant]
  8. HUMULIN N [Concomitant]
  9. OMEPRAZOLE [Concomitant]
  10. SERTRALINE HYDROCHLORIDE [Concomitant]

REACTIONS (4)
  - GENITAL RASH [None]
  - HAEMORRHOIDS [None]
  - ANORECTAL DISCOMFORT [None]
  - ANAL PRURITUS [None]
